FAERS Safety Report 7552021-8 (Version None)
Quarter: 2011Q2

REPORT INFORMATION
  Report Type: 
  Country: None (occurrence: None)
  Receive Date: 20110616
  Receipt Date: 20110607
  Transmission Date: 20111010
  Serious: Yes (Life-Threatening)
  Sender: FDA-Public Use
  Company Number: IT-TEVA-286402ISR

PATIENT
  Sex: Male

DRUGS (14)
  1. OXALIPLATIN [Concomitant]
     Indication: PANCREATIC CARCINOMA METASTATIC
     Dosage: 135 MILLIGRAM;
     Route: 042
     Dates: start: 20110513, end: 20110513
  2. METOCLOPRAMIDE [Concomitant]
     Indication: VOMITING
     Dosage: 10 MILLIGRAM; 10MG/2ML
     Route: 042
     Dates: start: 20110514, end: 20110515
  3. IRINOTECAN HCL [Concomitant]
     Indication: PANCREATIC CARCINOMA METASTATIC
     Dosage: 290 MILLIGRAM;
     Route: 042
     Dates: start: 20110513, end: 20110513
  4. ALLOPURINOL [Concomitant]
     Indication: HYPERURICOSURIA
     Dosage: 300 MILLIGRAM;
     Route: 048
     Dates: start: 20110415, end: 20110515
  5. CEFTRIAXONE [Concomitant]
     Dosage: 1500 MILLIGRAM; 1G/10ML
     Route: 042
     Dates: start: 20110515
  6. SULFAMETHOXAZOLE AND TRIMETHOPRIM [Concomitant]
     Indication: ANTIBIOTIC PROPHYLAXIS
     Dosage: 160MG/80MG
     Route: 048
     Dates: start: 20110415, end: 20110515
  7. OMEPRAZOLE [Concomitant]
     Indication: PROPHYLAXIS AGAINST GASTROINTESTINAL ULCER
     Dosage: 80 MILLIGRAM;
     Route: 042
     Dates: start: 20110513, end: 20110513
  8. CLEMASTINE FUMARATE [Concomitant]
     Indication: VOMITING
     Dosage: .5 MILLIGRAM;
     Route: 042
     Dates: start: 20110515, end: 20110515
  9. PREDNISONE [Concomitant]
     Dosage: 6 MILLIGRAM;
     Route: 042
     Dates: start: 20110514, end: 20110515
  10. CALCIUM LAEVULINATE [Concomitant]
     Indication: ANAEMIA
     Dosage: 640 MILLIGRAM;
     Route: 042
     Dates: start: 20110513, end: 20110513
  11. CIPROFLOXACIN [Concomitant]
     Indication: ANTIBIOTIC PROPHYLAXIS
     Dosage: 1000 MILLIGRAM;
     Route: 048
     Dates: start: 20110415, end: 20110515
  12. PALONOSETRON HYDROCHLORIDE [Concomitant]
     Indication: VOMITING
     Dosage: 250 MICROGRAM;
     Route: 042
     Dates: start: 20110514, end: 20110515
  13. FLUOROURACIL [Suspect]
     Indication: PANCREATIC CARCINOMA METASTATIC
     Dosage: 4440 MILLIGRAM;
     Route: 042
     Dates: start: 20110513, end: 20110515
  14. ONDANSETRON [Concomitant]
     Indication: PROPHYLAXIS OF NAUSEA AND VOMITING
     Dosage: 24 MILLIGRAM;
     Route: 042
     Dates: start: 20110513, end: 20110513

REACTIONS (1)
  - CARDIAC FAILURE ACUTE [None]
